FAERS Safety Report 7655020 (Version 2)
Quarter: 2012Q4

REPORT INFORMATION
  Report Type: 
  Country: JP (occurrence: US)
  Receive Date: 20101103
  Receipt Date: 20121004
  Transmission Date: 20130627
  Serious: Yes (Hospitalization, Other)
  Sender: FDA-Public Use
  Company Number: US-JNJFOC-20100708051

PATIENT
  Age: 62 None
  Sex: Female

DRUGS (24)
  1. LEVAQUIN [Suspect]
     Indication: NASOPHARYNGITIS
     Route: 048
     Dates: start: 200510, end: 200510
  2. LEVAQUIN [Suspect]
     Indication: NASOPHARYNGITIS
     Route: 048
     Dates: start: 200609, end: 200610
  3. LEVAQUIN [Suspect]
     Indication: SINUSITIS
     Route: 048
     Dates: start: 200609, end: 200610
  4. LEVAQUIN [Suspect]
     Indication: SINUSITIS
     Route: 048
     Dates: start: 200510, end: 200510
  5. METHYLPREDNISOLONE [Suspect]
     Indication: RHEUMATOID ARTHRITIS
     Route: 065
     Dates: start: 20090317
  6. METHYLPREDNISOLONE [Suspect]
     Indication: RHEUMATOID ARTHRITIS
     Route: 065
     Dates: start: 20061004
  7. METHYLPREDNISOLONE [Suspect]
     Indication: RHEUMATOID ARTHRITIS
     Route: 065
     Dates: start: 20070515
  8. METHYLPREDNISOLONE [Suspect]
     Indication: RHEUMATOID ARTHRITIS
     Route: 065
     Dates: start: 20060912
  9. METHYLPREDNISOLONE [Suspect]
     Indication: RHEUMATOID ARTHRITIS
     Route: 065
     Dates: start: 20050817
  10. METHYLPREDNISOLONE [Suspect]
     Indication: OROPHARYNGEAL PAIN
     Route: 065
     Dates: start: 20090317
  11. METHYLPREDNISOLONE [Suspect]
     Indication: OROPHARYNGEAL PAIN
     Route: 065
     Dates: start: 20070515
  12. METHYLPREDNISOLONE [Suspect]
     Indication: OROPHARYNGEAL PAIN
     Route: 065
     Dates: start: 20061004
  13. METHYLPREDNISOLONE [Suspect]
     Indication: OROPHARYNGEAL PAIN
     Route: 065
     Dates: start: 20060912
  14. METHYLPREDNISOLONE [Suspect]
     Indication: OROPHARYNGEAL PAIN
     Route: 065
     Dates: start: 20050817
  15. METHYLPREDNISOLONE [Suspect]
     Indication: SINUS DISORDER
     Route: 065
     Dates: start: 20070515
  16. METHYLPREDNISOLONE [Suspect]
     Indication: SINUS DISORDER
     Route: 065
     Dates: start: 20090317
  17. METHYLPREDNISOLONE [Suspect]
     Indication: SINUS DISORDER
     Route: 065
     Dates: start: 20061004
  18. METHYLPREDNISOLONE [Suspect]
     Indication: SINUS DISORDER
     Route: 065
     Dates: start: 20050817
  19. METHYLPREDNISOLONE [Suspect]
     Indication: SINUS DISORDER
     Route: 065
     Dates: start: 20060912
  20. METHYLPREDNISOLONE [Suspect]
     Indication: COUGH
     Route: 065
     Dates: start: 20050817
  21. METHYLPREDNISOLONE [Suspect]
     Indication: COUGH
     Route: 065
     Dates: start: 20090317
  22. METHYLPREDNISOLONE [Suspect]
     Indication: COUGH
     Route: 065
     Dates: start: 20060912
  23. METHYLPREDNISOLONE [Suspect]
     Indication: COUGH
     Route: 065
     Dates: start: 20061004
  24. METHYLPREDNISOLONE [Suspect]
     Indication: COUGH
     Route: 065
     Dates: start: 20070515

REACTIONS (3)
  - Tendon rupture [Unknown]
  - Meniscus injury [Unknown]
  - Exostosis [Unknown]
